FAERS Safety Report 24845990 (Version 1)
Quarter: 2025Q1

REPORT INFORMATION
  Report Type: Spontaneous
  Country: DE (occurrence: DE)
  Receive Date: 20250115
  Receipt Date: 20250115
  Transmission Date: 20250408
  Serious: Yes (Death, Other)
  Sender: AMGEN
  Company Number: DE-AMGEN-DEUSP2025005115

PATIENT

DRUGS (2)
  1. BEVACIZUMAB [Suspect]
     Active Substance: BEVACIZUMAB
     Indication: Metastases to central nervous system
     Route: 065
  2. TRASTUZUMAB [Suspect]
     Active Substance: TRASTUZUMAB
     Indication: Metastases to central nervous system
     Route: 065

REACTIONS (16)
  - Death [Fatal]
  - Lung adenocarcinoma [Unknown]
  - Non-small cell lung cancer metastatic [Unknown]
  - Breast cancer metastatic [Unknown]
  - Small cell lung cancer metastatic [Unknown]
  - Metastatic malignant melanoma [Unknown]
  - Gastrointestinal cancer metastatic [Unknown]
  - Malignant neoplasm of unknown primary site [Unknown]
  - Metastatic neoplasm [Unknown]
  - Epilepsy [Unknown]
  - Nervous system disorder [Unknown]
  - Cognitive disorder [Unknown]
  - Dizziness [Unknown]
  - Vertigo [Unknown]
  - Headache [Unknown]
  - Nausea [Unknown]
